FAERS Safety Report 16812925 (Version 1)
Quarter: 2019Q3

REPORT INFORMATION
  Report Type: Other
  Country: US (occurrence: US)
  Receive Date: 20190916
  Receipt Date: 20190916
  Transmission Date: 20191005
  Serious: No
  Sender: FDA-Public Use
  Company Number: US-LEADIANT BIOSCIENCES INC-2018STPI000546

PATIENT
  Sex: Male

DRUGS (1)
  1. MATULANE [Suspect]
     Active Substance: PROCARBAZINE HYDROCHLORIDE
     Indication: BRAIN NEOPLASM MALIGNANT
     Dosage: 150 MG FOR 4 DAYS, THEN 100 MG DAILY FOR 3 DAYS, REPEAT FOR 1 MORE WEEK
     Route: 048
     Dates: start: 20180516

REACTIONS (1)
  - Urticaria [Not Recovered/Not Resolved]
